FAERS Safety Report 7555366-0 (Version None)
Quarter: 2011Q2

REPORT INFORMATION
  Report Type: 
  Country: None (occurrence: None)
  Receive Date: 20110617
  Receipt Date: 20110608
  Transmission Date: 20111010
  Serious: Yes (Hospitalization)
  Sender: FDA-Public Use
  Company Number: US-ASTRAZENECA-2011SE34987

PATIENT
  Age: 58 Year
  Sex: Female
  Weight: 83.5 kg

DRUGS (5)
  1. CRESTOR [Suspect]
     Indication: HYPERCHOLESTEROLAEMIA
     Route: 048
     Dates: start: 20101029, end: 20101029
  2. OMEPRAZOLE [Concomitant]
  3. XANAX [Concomitant]
  4. EFFEXOR [Concomitant]
  5. XOPENEX [Concomitant]

REACTIONS (4)
  - QUADRIPLEGIA [None]
  - DYSARTHRIA [None]
  - APHASIA [None]
  - VIITH NERVE PARALYSIS [None]
